FAERS Safety Report 13246512 (Version 3)
Quarter: 2017Q3

REPORT INFORMATION
  Report Type: Report from Study
  Country: None (occurrence: US)
  Receive Date: 20170217
  Receipt Date: 20170928
  Transmission Date: 20171127
  Serious: Yes (Hospitalization)
  Sender: FDA-Public Use
  Company Number: US-ABBVIE-17K-163-1872218-00

PATIENT
  Age: 28 Year
  Sex: Female

DRUGS (3)
  1. HUMIRA [Suspect]
     Active Substance: ADALIMUMAB
     Route: 058
     Dates: start: 20170129, end: 2017
  2. HUMIRA [Suspect]
     Active Substance: ADALIMUMAB
     Indication: CROHN^S DISEASE
     Route: 058
     Dates: start: 20161229, end: 20161229
  3. HUMIRA [Suspect]
     Active Substance: ADALIMUMAB
     Route: 058
     Dates: start: 20170111, end: 20170111

REACTIONS (16)
  - Headache [Unknown]
  - Weight decreased [Unknown]
  - Nasal congestion [Unknown]
  - Malaise [Unknown]
  - Major depression [Unknown]
  - Constipation [Unknown]
  - Nausea [Unknown]
  - Injection site erythema [Recovered/Resolved]
  - Injection site swelling [Recovered/Resolved]
  - Vomiting [Unknown]
  - Mental disorder [Unknown]
  - Dyspnoea [Unknown]
  - Injection site bruising [Recovered/Resolved]
  - Decreased appetite [Unknown]
  - Asthenopia [Unknown]
  - Urticaria [Recovered/Resolved]

NARRATIVE: CASE EVENT DATE: 201612
